FAERS Safety Report 7115151-0 (Version None)
Quarter: 2010Q4

REPORT INFORMATION
  Report Type: 
  Country: None (occurrence: None)
  Receive Date: 20101122
  Receipt Date: 20101116
  Transmission Date: 20110411
  Serious: Yes (Other)
  Sender: FDA-Public Use
  Company Number: US-BAYER-201041667NA

PATIENT
  Age: 33 Year
  Sex: Female

DRUGS (1)
  1. YAZ [Suspect]
     Indication: PRODUCT USED FOR UNKNOWN INDICATION
     Route: 048

REACTIONS (4)
  - AMENORRHOEA [None]
  - CERVIX HAEMORRHAGE UTERINE [None]
  - HIGH RISK PREGNANCY [None]
  - PREGNANCY ON ORAL CONTRACEPTIVE [None]
